FAERS Safety Report 6790461-5 (Version None)
Quarter: 2010Q2

REPORT INFORMATION
  Report Type: 
  Country: None (occurrence: None)
  Receive Date: 20100624
  Receipt Date: 20100610
  Transmission Date: 20101027
  Serious: Yes (Hospitalization)
  Sender: FDA-Public Use
  Company Number: US-ROCHE-695703

PATIENT
  Sex: Male
  Weight: 95.8 kg

DRUGS (9)
  1. PEGINTERFERON ALFA-2A [Suspect]
     Dosage: LAST DOSE PRIOR TO SAE: 22 MARCH 2010.
     Route: 058
     Dates: start: 20100309
  2. RIBAVIRIN [Suspect]
     Dosage: LAST DOSE PRIOR TO SAE: 27 MARCH 2010.
     Route: 048
     Dates: start: 20100309
  3. NITAZOXANIDE [Suspect]
     Dosage: LAST DOSE PRIOR TO SAE: 27 MARCH 2010.
     Route: 048
     Dates: start: 20100209
  4. ALBUTEROL [Concomitant]
     Dosage: ROUTEL INTRAPULMONERY;
     Dates: end: 20100327
  5. VERAPAMIL [Concomitant]
     Indication: HYPERTENSION
     Dosage: FREQUENCY: DAILY.
     Route: 048
     Dates: end: 20100327
  6. SPIRIVA [Concomitant]
     Dosage: ROUTE: INTRAPULMONERY.
     Dates: end: 20100327
  7. ADVAIR DISKUS 100/50 [Concomitant]
     Dosage: ROUTEL INTRAPULMONERY.
     Dates: end: 20100327
  8. METHADONE [Concomitant]
     Dosage: INDICATION: OPIATE WITHDRAWL SYNDROME. FREQUENCY: DAILY.
     Route: 048
     Dates: end: 20100327
  9. DILAUDID [Concomitant]
     Indication: PAIN
     Route: 048
     Dates: end: 20100327

REACTIONS (1)
  - HAEMATURIA [None]
